APPROVED DRUG PRODUCT: VASOPRESSIN
Active Ingredient: VASOPRESSIN
Strength: 200UNITS/10ML (20UNITS/ML)
Dosage Form/Route: SOLUTION;INTRAVENOUS
Application: N212593 | Product #002
Applicant: AMERICAN REGENT INC
Approved: Jun 9, 2023 | RLD: Yes | RS: Yes | Type: RX